FAERS Safety Report 6571213-8 (Version None)
Quarter: 2010Q1

REPORT INFORMATION
  Report Type: 
  Country: None (occurrence: None)
  Receive Date: 20100129
  Receipt Date: 20100127
  Transmission Date: 20100710
  Serious: Yes (Hospitalization)
  Sender: FDA-Public Use
  Company Number: 1000010551

PATIENT
  Age: 36 Year
  Sex: Female
  Weight: 58.514 kg

DRUGS (5)
  1. SAVELLA [Suspect]
     Indication: FIBROMYALGIA
     Dosage: 12.5 MG (12.5 MG, 1 IN 1 D), ORAL 25 MG (12.5 MG, 2 IN 1 D), ORAL 50 MG (25 MG, 2 IN 1 D) ORAL
     Route: 048
     Dates: start: 20091110, end: 20091110
  2. SAVELLA [Suspect]
     Indication: FIBROMYALGIA
     Dosage: 12.5 MG (12.5 MG, 1 IN 1 D), ORAL 25 MG (12.5 MG, 2 IN 1 D), ORAL 50 MG (25 MG, 2 IN 1 D) ORAL
     Route: 048
     Dates: start: 20091111, end: 20091112
  3. SAVELLA [Suspect]
     Indication: FIBROMYALGIA
     Dosage: 12.5 MG (12.5 MG, 1 IN 1 D), ORAL 25 MG (12.5 MG, 2 IN 1 D), ORAL 50 MG (25 MG, 2 IN 1 D) ORAL
     Route: 048
     Dates: start: 20091113, end: 20091116
  4. SAVELLA [Suspect]
     Indication: FIBROMYALGIA
     Dosage: 100 MG, (50 MG, 2 IN 1 D), ORAL
     Route: 048
     Dates: start: 20091117, end: 20091123
  5. LOMOTIL (TABLETS) [Concomitant]

REACTIONS (7)
  - CONDITION AGGRAVATED [None]
  - CROHN'S DISEASE [None]
  - DEHYDRATION [None]
  - DIARRHOEA [None]
  - GASTROINTESTINAL HAEMORRHAGE [None]
  - NAUSEA [None]
  - VOMITING [None]
